FAERS Safety Report 18347964 (Version 1)
Quarter: 2020Q4

REPORT INFORMATION
  Report Type: Spontaneous
  Country: FR (occurrence: FR)
  Receive Date: 20201006
  Receipt Date: 20201006
  Transmission Date: 20210114
  Serious: Yes (Hospitalization)
  Sender: FDA-Public Use
  Company Number: FR-SAMSUNG BIOEPIS-SB-2020-29950

PATIENT
  Age: 45 Year
  Sex: Female
  Weight: 89 kg

DRUGS (4)
  1. BENEPALI [Suspect]
     Active Substance: ETANERCEPT
     Indication: SPONDYLITIS
     Route: 058
     Dates: start: 201912
  2. PROFENID [Suspect]
     Active Substance: KETOPROFEN
     Indication: SPONDYLITIS
     Route: 030
  3. DIPROSTENE [Suspect]
     Active Substance: BETAMETHASONE DIPROPIONATE\BETAMETHASONE SODIUM PHOSPHATE
     Indication: SPONDYLITIS
     Route: 030
     Dates: start: 20191205, end: 20191205
  4. JASMINELLE [Suspect]
     Active Substance: DROSPIRENONE
     Indication: CONTRACEPTION
     Dosage: 0.02 MG / 3 MG
     Route: 048
     Dates: end: 202002

REACTIONS (3)
  - Product use in unapproved indication [Unknown]
  - Pulmonary embolism [Recovered/Resolved]
  - Deep vein thrombosis [Recovered/Resolved]

NARRATIVE: CASE EVENT DATE: 20191222
